FAERS Safety Report 9879070 (Version 2)
Quarter: 2014Q1

REPORT INFORMATION
  Report Type: Spontaneous
  Country: US (occurrence: US)
  Receive Date: 20140206
  Receipt Date: 20140206
  Transmission Date: 20141002
  Serious: No
  Sender: FDA-Public Use
  Company Number: US-ALLERGAN-1313567US

PATIENT
  Age: 40 Year
  Sex: Male

DRUGS (2)
  1. BOTOX COSMETIC [Suspect]
     Indication: SKIN WRINKLING
     Dosage: 20 UNITS, SINGLE
     Route: 030
     Dates: start: 20130815, end: 20130815
  2. NAPHCON A [Suspect]
     Indication: EYELID PTOSIS
     Dosage: UNK
     Dates: start: 20130827, end: 20130828

REACTIONS (12)
  - Tremor [Recovering/Resolving]
  - Feeling abnormal [Recovering/Resolving]
  - Asthenia [Recovering/Resolving]
  - Cold sweat [Recovering/Resolving]
  - Anxiety [Recovering/Resolving]
  - Tachycardia [Recovering/Resolving]
  - Anxiety [Recovering/Resolving]
  - Hyperhidrosis [Recovering/Resolving]
  - Blood pressure increased [Recovered/Resolved]
  - Emotional distress [Unknown]
  - Eyelid ptosis [Recovering/Resolving]
  - Dyspnoea [Recovering/Resolving]
